FAERS Safety Report 9803285 (Version 1)
Quarter: 2014Q1

REPORT INFORMATION
  Report Type: Spontaneous
  Country: US (occurrence: None)
  Receive Date: 20140107
  Receipt Date: 20140107
  Transmission Date: 20141002
  Serious: No
  Sender: FDA-Public Use
  Company Number: None

PATIENT
  Age: 56 Year
  Sex: Female
  Weight: 131.09 kg

DRUGS (2)
  1. BRINTELLIX [Suspect]
     Indication: DEPRESSION
     Dosage: 1/2 A PILL
     Route: 048
     Dates: start: 20131101, end: 20140102
  2. CPAP MACHINE [Concomitant]

REACTIONS (4)
  - Lip swelling [None]
  - Lip blister [None]
  - Oral discomfort [None]
  - Gastric disorder [None]
